FAERS Safety Report 6313247-4 (Version None)
Quarter: 2009Q3

REPORT INFORMATION
  Report Type: 
  Country: None (occurrence: None)
  Receive Date: 20090818
  Receipt Date: 20090806
  Transmission Date: 20100115
  Serious: Yes (Hospitalization)
  Sender: FDA-Public Use
  Company Number: TW-GENENTECH-274590

PATIENT
  Sex: Male

DRUGS (9)
  1. BEVACIZUMAB [Suspect]
     Indication: RENAL CELL CARCINOMA
     Dosage: 720 MG, 2/WEEK
     Route: 042
     Dates: start: 20081210, end: 20090708
  2. INTERFERON ALFA-2A [Suspect]
     Indication: RENAL CELL CARCINOMA
     Dosage: 6 IU, 3/WEEK
     Route: 058
     Dates: start: 20081210, end: 20090717
  3. PARACETAMOL [Concomitant]
     Indication: DRUG USE FOR UNKNOWN INDICATION
     Dosage: UNK
     Dates: start: 20081210
  4. COLCHICINE [Concomitant]
     Indication: DRUG USE FOR UNKNOWN INDICATION
     Dosage: UNK
     Dates: start: 20080913
  5. TRAMADOL [Concomitant]
     Indication: DRUG USE FOR UNKNOWN INDICATION
     Dosage: UNK
     Dates: start: 20090708, end: 20090716
  6. BENZBROMARON [Concomitant]
     Indication: DRUG USE FOR UNKNOWN INDICATION
     Dosage: UNK
     Dates: start: 20080713
  7. APROVEL [Concomitant]
     Indication: DRUG USE FOR UNKNOWN INDICATION
     Dosage: UNK
     Dates: start: 20081211
  8. THIAMINE HCL [Concomitant]
  9. IRBESARTAN [Concomitant]
     Indication: DRUG USE FOR UNKNOWN INDICATION

REACTIONS (6)
  - ARTERIOSCLEROSIS CORONARY ARTERY [None]
  - HAEMORRHAGIC STROKE [None]
  - HEADACHE [None]
  - PAIN [None]
  - THALAMIC INFARCTION [None]
  - UPPER GASTROINTESTINAL HAEMORRHAGE [None]
